FAERS Safety Report 25401273 (Version 1)
Quarter: 2025Q2

REPORT INFORMATION
  Report Type: Spontaneous
  Country: GB (occurrence: GB)
  Receive Date: 20250605
  Receipt Date: 20250605
  Transmission Date: 20250717
  Serious: Yes (Other)
  Sender: PFIZER
  Company Number: None

PATIENT
  Sex: Female

DRUGS (1)
  1. CARBOPLATIN [Suspect]
     Active Substance: CARBOPLATIN
     Indication: Chemotherapy
     Dates: start: 20250528

REACTIONS (5)
  - Dyspnoea [Unknown]
  - Flushing [Unknown]
  - Oxygen saturation decreased [Unknown]
  - Malaise [Unknown]
  - Erythema [Unknown]
